FAERS Safety Report 6310305-5 (Version None)
Quarter: 2009Q3

REPORT INFORMATION
  Report Type: 
  Country: None (occurrence: None)
  Receive Date: 20090814
  Receipt Date: 20090807
  Transmission Date: 20100115
  Serious: Yes (Other)
  Sender: FDA-Public Use
  Company Number: PHHY2009FI33138

PATIENT
  Sex: Female

DRUGS (2)
  1. EXFORGE [Suspect]
     Indication: HYPERTENSION
     Dosage: 1 DF (80/5 MG) PER DAY
     Dates: start: 20090501, end: 20090624
  2. PANACOD [Concomitant]
     Indication: NECK PAIN
     Dosage: 1 TO 2 TABLET PER DAY UP TO 3 TABLETS WHEN NEEDED
     Dates: start: 20080930

REACTIONS (1)
  - PAIN [None]
